FAERS Safety Report 6897897-2 (Version None)
Quarter: 2010Q3

REPORT INFORMATION
  Report Type: 
  Country: None (occurrence: None)
  Receive Date: 20100802
  Receipt Date: 20070808
  Transmission Date: 20110219
  Serious: No
  Sender: FDA-Public Use
  Company Number: US-PFIZER INC-2007066863

PATIENT
  Age: 73 Year
  Sex: Male
  Weight: 81.6 kg

DRUGS (1)
  1. LYRICA [Suspect]
     Indication: PAIN
     Dates: start: 20070101

REACTIONS (1)
  - VISION BLURRED [None]
